FAERS Safety Report 6981053-3 (Version None)
Quarter: 2010Q3

REPORT INFORMATION
  Report Type: 
  Country: None (occurrence: None)
  Receive Date: 20100914
  Receipt Date: 20100907
  Transmission Date: 20110219
  Serious: Yes (Other)
  Sender: FDA-Public Use
  Company Number: NO-BAYER-NO-2007-016117

PATIENT
  Age: 20 Year
  Sex: Female
  Weight: 48 kg

DRUGS (3)
  1. YASMIN [Suspect]
     Indication: ORAL CONTRACEPTION
     Dosage: UNK, UNK
     Route: 048
     Dates: start: 20030101, end: 20070301
  2. BACTRIM [Interacting]
     Indication: URINARY TRACT INFECTION
  3. EFFORTIL [Concomitant]
     Indication: SINUS DISORDER
     Dosage: UNIT DOSE: 5 MG

REACTIONS (2)
  - PREGNANCY ON ORAL CONTRACEPTIVE [None]
  - PREMATURE LABOUR [None]
